FAERS Safety Report 4869350-9 (Version None)
Quarter: 2005Q4

REPORT INFORMATION
  Report Type: 
  Country: None (occurrence: None)
  Receive Date: 20051227
  Receipt Date: 20051227
  Transmission Date: 20060501
  Serious: No
  Sender: FDA-Public Use
  Company Number: None

PATIENT

DRUGS (1)
  1. NUTROPIN AQ [Suspect]
     Dosage: 1.4 MG , SUBCUTANEOUS
     Route: 058

REACTIONS (1)
  - OVERDOSE [None]
